FAERS Safety Report 17420247 (Version 2)
Quarter: 2020Q2

REPORT INFORMATION
  Report Type: Spontaneous
  Country: US (occurrence: US)
  Receive Date: 20200214
  Receipt Date: 20200408
  Transmission Date: 20200713
  Serious: No
  Sender: FDA-Public Use
  Company Number: US-VERTEX PHARMACEUTICALS-2020-001783

PATIENT
  Age: 63 Year
  Sex: Female

DRUGS (1)
  1. TRIKAFTA [Suspect]
     Active Substance: ELEXACAFTOR\IVACAFTOR\TEZACAFTOR
     Indication: CYSTIC FIBROSIS
     Dosage: 100 MG ELEXACAFTOR/ 50 MG TEZACAFTOR/ 75 MG IVACAFTOR AND 150 MG IVACAFTOR,BID
     Route: 048
     Dates: start: 20200124

REACTIONS (14)
  - Flatulence [Unknown]
  - Heart rate decreased [Recovered/Resolved]
  - Nasal congestion [Recovering/Resolving]
  - Faecal volume increased [Unknown]
  - Abdominal pain [Unknown]
  - Weight increased [Unknown]
  - Palpitations [Recovering/Resolving]
  - Sleep deficit [Not Recovered/Not Resolved]
  - Hypersensitivity [Not Recovered/Not Resolved]
  - Vision blurred [Unknown]
  - Frequent bowel movements [Unknown]
  - Sinusitis [Not Recovered/Not Resolved]
  - Neuropathy peripheral [Unknown]
  - Sinus congestion [Not Recovered/Not Resolved]

NARRATIVE: CASE EVENT DATE: 202001
